FAERS Safety Report 24317485 (Version 1)
Quarter: 2024Q3

REPORT INFORMATION
  Report Type: Spontaneous
  Country: FR (occurrence: FR)
  Receive Date: 20240913
  Receipt Date: 20240913
  Transmission Date: 20241017
  Serious: Yes (Other)
  Sender: RANBAXY
  Company Number: FR-SUN PHARMACEUTICAL INDUSTRIES LTD-2024R1-467803

PATIENT
  Age: 47 Year
  Sex: Male

DRUGS (14)
  1. PREDNISONE [Suspect]
     Active Substance: PREDNISONE
     Indication: Chronic graft versus host disease
     Dosage: UNK
     Route: 065
  2. RUXOLITINIB [Suspect]
     Active Substance: RUXOLITINIB
     Indication: Chronic graft versus host disease
     Dosage: UNK
     Route: 065
  3. METHOTREXATE [Suspect]
     Active Substance: METHOTREXATE
     Indication: Chronic graft versus host disease
     Dosage: UNK
     Route: 065
  4. CYCLOSPORINE [Suspect]
     Active Substance: CYCLOSPORINE
     Indication: Chronic graft versus host disease
     Dosage: UNK
     Route: 065
  5. CLOBETASOL [Suspect]
     Active Substance: CLOBETASOL
     Indication: Chronic graft versus host disease
     Dosage: UNK
     Route: 065
  6. ACITRETIN [Suspect]
     Active Substance: ACITRETIN
     Indication: Chronic graft versus host disease
     Dosage: UNK
     Route: 065
  7. BEXAROTENE [Suspect]
     Active Substance: BEXAROTENE
     Indication: Chronic graft versus host disease
     Dosage: UNK
     Route: 065
  8. BRENTUXIMAB VEDOTIN [Suspect]
     Active Substance: BRENTUXIMAB VEDOTIN
     Indication: Chronic graft versus host disease
     Dosage: UNK
     Route: 065
  9. DOXORUBICIN HYDROCHLORIDE [Suspect]
     Active Substance: DOXORUBICIN HYDROCHLORIDE
     Indication: Chronic graft versus host disease
     Dosage: UNK
     Route: 065
  10. ROMIDEPSIN [Suspect]
     Active Substance: ROMIDEPSIN
     Indication: Chronic graft versus host disease
     Dosage: UNK
     Route: 065
  11. ETOPOSIDE [Suspect]
     Active Substance: ETOPOSIDE
     Indication: Chronic graft versus host disease
     Dosage: UNK
     Route: 065
  12. BENDAMUSTINE [Suspect]
     Active Substance: BENDAMUSTINE
     Indication: Chronic graft versus host disease
     Dosage: UNK
     Route: 065
  13. NIVOLUMAB [Suspect]
     Active Substance: NIVOLUMAB
  14. IFOSFAMIDE [Suspect]
     Active Substance: IFOSFAMIDE

REACTIONS (4)
  - Drug ineffective [Unknown]
  - Disease recurrence [Unknown]
  - Graft versus host disease [Unknown]
  - Therapy partial responder [Unknown]
